FAERS Safety Report 17493398 (Version 1)
Quarter: 2020Q1

REPORT INFORMATION
  Report Type: Spontaneous
  Country: US (occurrence: US)
  Receive Date: 20200221
  Receipt Date: 20200221
  Transmission Date: 20200409
  Serious: No
  Sender: FDA-Public Use
  Company Number: None

PATIENT
  Age: 49 Year
  Sex: Female

DRUGS (13)
  1. PLAQUENIL [Concomitant]
     Active Substance: HYDROXYCHLOROQUINE SULFATE
  2. PAROXETINE. [Concomitant]
     Active Substance: PAROXETINE
  3. OCALIVA [Suspect]
     Active Substance: OBETICHOLIC ACID
     Indication: PRIMARY BILIARY CHOLANGITIS
     Route: 048
     Dates: start: 20161222
  4. ONE-A-DAY [Concomitant]
     Active Substance: VITAMINS
  5. SINGULAIR [Concomitant]
     Active Substance: MONTELUKAST SODIUM
  6. ESTRADIOL. [Concomitant]
     Active Substance: ESTRADIOL
  7. FISH OIL [Concomitant]
     Active Substance: FISH OIL
  8. SULFASALAZINE DELAYED-RELEASE [Concomitant]
     Active Substance: SULFASALAZINE
  9. CALCIUM [Concomitant]
     Active Substance: CALCIUM
  10. URSO [Concomitant]
     Active Substance: URSODIOL
  11. SYNTHROID [Concomitant]
     Active Substance: LEVOTHYROXINE SODIUM
  12. RESTORIL [Concomitant]
     Active Substance: TEMAZEPAM
  13. CALCIUM CARBONATE. [Concomitant]
     Active Substance: CALCIUM CARBONATE

REACTIONS (2)
  - Influenza [None]
  - Therapy cessation [None]

NARRATIVE: CASE EVENT DATE: 202001
